FAERS Safety Report 10935842 (Version 2)
Quarter: 2016Q1

REPORT INFORMATION
  Report Type: Spontaneous
  Country: US (occurrence: US)
  Receive Date: 20150320
  Receipt Date: 20160309
  Transmission Date: 20160525
  Serious: Yes (Other)
  Sender: FDA-Public Use
  Company Number: US-AMGEN-USASP2015026887

PATIENT
  Age: 65 Year
  Sex: Female

DRUGS (1)
  1. PROLIA [Suspect]
     Active Substance: DENOSUMAB
     Indication: OSTEOPENIA
     Dosage: UNK, Q6MO
     Route: 065
     Dates: start: 201401

REACTIONS (3)
  - Off label use [Unknown]
  - Tooth disorder [Unknown]
  - Cardiac pacemaker insertion [Unknown]

NARRATIVE: CASE EVENT DATE: 20150226
